FAERS Safety Report 7949313-7 (Version None)
Quarter: 2011Q4

REPORT INFORMATION
  Report Type: 
  Country: None (occurrence: None)
  Receive Date: 20111123
  Receipt Date: 20111115
  Transmission Date: 20120403
  Serious: Yes (Hospitalization)
  Sender: FDA-Public Use
  Company Number: 2011HGS-002804

PATIENT
  Age: 61 Year
  Sex: Female
  Weight: 90.7194 kg

DRUGS (17)
  1. ELAVIL (AMITRIPTYLINE HYDROCLORIDE) (HYDROCHLORIDE) [Concomitant]
  2. OMEPRAZOLE [Concomitant]
  3. PLAQUENIL (HYDROXYCHOROQUINE SULFATE) (HYDROXYCHLOROQUINE SULFATE) [Concomitant]
  4. DIAMOX (ACETAZOLAMIDE) (ACETAZOLAMIDE) [Concomitant]
  5. ACIDOPHILUS (LACTOBACILLUS ACIDOPHILUS) (LACTOBACILLUS ACIDOPHILUS) [Concomitant]
  6. IMURAN [Concomitant]
  7. PREDNISONE [Concomitant]
  8. CALCIUM WITH VITAMIN D (CALCIUM WITH VITAMIN D) (ERGOCALCIFERO, CALCIU [Concomitant]
  9. CELEBREX [Concomitant]
  10. FOSAMAX [Concomitant]
  11. HYDROCHLOROTHIAZIDE (HYDROCHLOROTHIAZIDE) (HYDROCHLOROTHAIZIDE) [Concomitant]
  12. METHADONE (METHADONE) (METHADONE) [Concomitant]
  13. BENLYSTA [Suspect]
     Dosage: 10 MG/KG, 1 IN 128 D, INTRAVENOUS DRIP
     Route: 041
     Dates: start: 20110712
  14. LUMIGAN (BIMATOPROST) (BIMATOPROST) [Concomitant]
  15. AMBIEN [Concomitant]
  16. NEURONTIN [Concomitant]
  17. THEODUR (THEOPHYLLINE) (THEOPHYLLINE) [Concomitant]

REACTIONS (4)
  - OXYGEN SATURATION DECREASED [None]
  - LOWER LIMB FRACTURE [None]
  - FALL [None]
  - LOSS OF CONSCIOUSNESS [None]
